FAERS Safety Report 6564943-5 (Version None)
Quarter: 2010Q1

REPORT INFORMATION
  Report Type: 
  Country: None (occurrence: None)
  Receive Date: 20100128
  Receipt Date: 20100113
  Transmission Date: 20100710
  Serious: No
  Sender: FDA-Public Use
  Company Number: 2010-00036

PATIENT
  Age: 58 Year
  Sex: Female
  Weight: 77.1115 kg

DRUGS (4)
  1. COLD REMEDY ORAL MIST [Suspect]
     Dosage: QD - ONE DOSE
     Dates: start: 20100110
  2. ALCOHOL [Concomitant]
  3. NEXIUM [Concomitant]
  4. EFFEXOR XR [Concomitant]

REACTIONS (1)
  - AGEUSIA [None]
